FAERS Safety Report 8374915-6 (Version None)
Quarter: 2012Q2

REPORT INFORMATION
  Report Type: 
  Country: None (occurrence: None)
  Receive Date: 20120521
  Receipt Date: 20120515
  Transmission Date: 20120825
  Serious: Yes (Hospitalization)
  Sender: FDA-Public Use
  Company Number: US-AMGEN-USACT2012030506

PATIENT
  Age: 75 Year
  Sex: Male

DRUGS (2)
  1. IRINOTECAN HCL [Concomitant]
     Indication: OESOPHAGEAL CARCINOMA
     Dosage: 63 MG/M2, UNK
     Dates: start: 20120229
  2. PANITUMUMAB [Suspect]
     Indication: OESOPHAGEAL CARCINOMA
     Dosage: 9 MG/KG, Q3WK
     Route: 042
     Dates: start: 20120229

REACTIONS (3)
  - DEHYDRATION [None]
  - DIARRHOEA [None]
  - WHITE BLOOD CELL COUNT DECREASED [None]
